FAERS Safety Report 25493448 (Version 1)
Quarter: 2025Q2

REPORT INFORMATION
  Report Type: Spontaneous
  Country: US (occurrence: US)
  Receive Date: 20250630
  Receipt Date: 20250630
  Transmission Date: 20250717
  Serious: Yes (Hospitalization)
  Sender: MYLAN
  Company Number: US-MYLANLABS-2025M1053983

PATIENT
  Age: 54 Year
  Sex: Female

DRUGS (16)
  1. NITROGLYCERIN [Suspect]
     Active Substance: NITROGLYCERIN
     Indication: Angina pectoris
  2. NITROGLYCERIN [Suspect]
     Active Substance: NITROGLYCERIN
     Route: 065
  3. NITROGLYCERIN [Suspect]
     Active Substance: NITROGLYCERIN
     Route: 065
  4. NITROGLYCERIN [Suspect]
     Active Substance: NITROGLYCERIN
  5. NITROGLYCERIN [Suspect]
     Active Substance: NITROGLYCERIN
     Indication: Angina pectoris
     Dosage: UNK, QD, RECEIVED 3-4 TABLETS DAILY
  6. NITROGLYCERIN [Suspect]
     Active Substance: NITROGLYCERIN
     Dosage: UNK, QD, RECEIVED 3-4 TABLETS DAILY
     Route: 065
  7. NITROGLYCERIN [Suspect]
     Active Substance: NITROGLYCERIN
     Dosage: UNK, QD, RECEIVED 3-4 TABLETS DAILY
     Route: 065
  8. NITROGLYCERIN [Suspect]
     Active Substance: NITROGLYCERIN
     Dosage: UNK, QD, RECEIVED 3-4 TABLETS DAILY
  9. ALLOPURINOL [Suspect]
     Active Substance: ALLOPURINOL
     Indication: Angina pectoris
  10. ALLOPURINOL [Suspect]
     Active Substance: ALLOPURINOL
     Route: 065
  11. ALLOPURINOL [Suspect]
     Active Substance: ALLOPURINOL
     Route: 065
  12. ALLOPURINOL [Suspect]
     Active Substance: ALLOPURINOL
  13. RANOLAZINE [Suspect]
     Active Substance: RANOLAZINE
     Indication: Angina pectoris
  14. RANOLAZINE [Suspect]
     Active Substance: RANOLAZINE
     Route: 065
  15. RANOLAZINE [Suspect]
     Active Substance: RANOLAZINE
     Route: 065
  16. RANOLAZINE [Suspect]
     Active Substance: RANOLAZINE

REACTIONS (2)
  - Drug ineffective [Unknown]
  - Off label use [Unknown]
